FAERS Safety Report 19816497 (Version 5)
Quarter: 2022Q4

REPORT INFORMATION
  Report Type: Report from Study
  Country: US (occurrence: US)
  Receive Date: 20210910
  Receipt Date: 20221012
  Transmission Date: 20230112
  Serious: Yes (Hospitalization)
  Sender: FDA-Public Use
  Company Number: US-BIOGEN-2021BI01047041

PATIENT
  Age: 44 Year
  Sex: Female
  Weight: 86 kg

DRUGS (19)
  1. TYSABRI [Suspect]
     Active Substance: NATALIZUMAB
     Indication: Multiple sclerosis
     Dosage: 300 MG/15 ML, EVERY 4.5-5 WEEKS, PST 500 ML NS BOLUS
     Route: 050
     Dates: start: 20080121, end: 20210617
  2. TYSABRI [Suspect]
     Active Substance: NATALIZUMAB
     Route: 050
     Dates: start: 20210920
  3. AUBAGIO [Suspect]
     Active Substance: TERIFLUNOMIDE
     Indication: Product used for unknown indication
     Route: 050
  4. ACETAMINOPHEN\HYDROCODONE [Concomitant]
     Active Substance: ACETAMINOPHEN\HYDROCODONE
     Indication: Product used for unknown indication
     Dosage: 5MG-325MG ORAL TABLET, 1 TABS, ORAL, EVERY 4 HR, PRN
     Route: 050
  5. LYRICA [Concomitant]
     Active Substance: PREGABALIN
     Indication: Product used for unknown indication
     Dosage: 3 CAP, ORAL, 1 PO TID
     Route: 050
  6. SPRINTEC [Concomitant]
     Active Substance: ETHINYL ESTRADIOL\NORGESTIMATE
     Indication: Product used for unknown indication
     Route: 050
  7. VITAMIN B12 [Concomitant]
     Active Substance: CYANOCOBALAMIN
     Indication: Product used for unknown indication
     Dosage: 1000 MCG/ML INJECTABLE SOLUTION, 1 APPL, INTRAMUSCULAR, AS DIRECTED
     Route: 050
  8. IOPAMIDOL [Concomitant]
     Active Substance: IOPAMIDOL
     Indication: Product used for unknown indication
     Route: 050
     Dates: start: 20210825
  9. VITAMIN D3 [Concomitant]
     Active Substance: CHOLECALCIFEROL
     Indication: Product used for unknown indication
     Dosage: 1000 UNIT, 2 PO QD
     Route: 050
  10. PROMETHAZINE HYDROCHLORIDE [Concomitant]
     Active Substance: PROMETHAZINE HYDROCHLORIDE
     Indication: Product used for unknown indication
     Dosage: 1 PO QD QRN
     Route: 050
  11. CYANOCOBALAMIN [Concomitant]
     Active Substance: CYANOCOBALAMIN
     Indication: Product used for unknown indication
     Dosage: 1000 MCG/ML, 1 IM INJECTION PER MONTH WITH INFUSION
     Route: 050
  12. CYCLOBENZAPRINE HYDROCHLORIDE [Concomitant]
     Active Substance: CYCLOBENZAPRINE HYDROCHLORIDE
     Indication: Product used for unknown indication
     Dosage: 1 PO PRN
     Route: 050
  13. MAXALT [Concomitant]
     Active Substance: RIZATRIPTAN BENZOATE
     Indication: Product used for unknown indication
     Dosage: 1 AT ONSET OF HA, MAY REPEAT * 1 IN 2 HRS, MAX 2/24 HRS.
     Route: 050
  14. TOPAMAX [Concomitant]
     Active Substance: TOPIRAMATE
     Indication: Product used for unknown indication
     Dosage: 1 PO QPM
     Route: 050
  15. LISINOPRIL [Concomitant]
     Active Substance: LISINOPRIL
     Indication: Product used for unknown indication
     Dosage: 1 PO QAM
     Route: 050
  16. ZOFRAN [Concomitant]
     Active Substance: ONDANSETRON HYDROCHLORIDE
     Indication: Nausea
     Dosage: 4MG ORAL TABLET, DISINTEGRATING, 4 MG = 1 TABS, ORAL, TID, PRN
     Route: 050
  17. ATIVAN [Concomitant]
     Active Substance: LORAZEPAM
     Indication: Vertigo
     Dosage: ONE PO TID PRN
     Route: 050
  18. MEDROL [Concomitant]
     Active Substance: METHYLPREDNISOLONE
     Indication: Product used for unknown indication
     Dosage: THERAPY PACK USE AS DIRECTED
     Route: 050
  19. SOLU-MEDROL [Concomitant]
     Active Substance: METHYLPREDNISOLONE SODIUM SUCCINATE
     Indication: Multiple sclerosis
     Dosage: PER DAY * 2 DAYS, INFUSE OVER 1.5-2 HOURS AS TOLERATED
     Route: 050

REACTIONS (6)
  - Enteritis [Recovered/Resolved]
  - Pancreatitis [Recovered/Resolved]
  - Ulcer [Unknown]
  - Balance disorder [Unknown]
  - Gastrointestinal disorder [Unknown]
  - General physical health deterioration [Unknown]

NARRATIVE: CASE EVENT DATE: 20210501
